APPROVED DRUG PRODUCT: ZOVIA 1/50E-21
Active Ingredient: ETHINYL ESTRADIOL; ETHYNODIOL DIACETATE
Strength: 0.05MG;1MG
Dosage Form/Route: TABLET;ORAL-21
Application: A072722 | Product #001
Applicant: WATSON LABORATORIES INC
Approved: Dec 30, 1991 | RLD: No | RS: No | Type: DISCN